FAERS Safety Report 6642522-9 (Version None)
Quarter: 2010Q1

REPORT INFORMATION
  Report Type: 
  Country: None (occurrence: None)
  Receive Date: 20100316
  Receipt Date: 20100301
  Transmission Date: 20100710
  Serious: Yes (Life-Threatening, Other)
  Sender: FDA-Public Use
  Company Number: 2009BI039762

PATIENT
  Age: 53 Year
  Sex: Female

DRUGS (7)
  1. ZEVALIN [Suspect]
     Indication: NON-HODGKIN'S LYMPHOMA
     Dosage: 1X;IV
     Route: 042
     Dates: start: 20080604, end: 20080611
  2. RITIXUMAB [Concomitant]
  3. CYCLOPHOSPHAMIDE [Concomitant]
  4. DOXORUBICIN HCL [Concomitant]
  5. VINCRISTINE [Concomitant]
  6. PREDNISONE [Concomitant]
  7. NEULASTA [Concomitant]

REACTIONS (2)
  - HODGKIN'S DISEASE [None]
  - LUNG ADENOCARCINOMA [None]
